FAERS Safety Report 6291247-0 (Version None)
Quarter: 2009Q3

REPORT INFORMATION
  Report Type: 
  Country: None (occurrence: None)
  Receive Date: 20090730
  Receipt Date: 20090720
  Transmission Date: 20100115
  Serious: Yes (Hospitalization, Other)
  Sender: FDA-Public Use
  Company Number: US-ALEXION-A200900568

PATIENT
  Sex: Female

DRUGS (4)
  1. SOLIRIS [Suspect]
     Indication: PAROXYSMAL NOCTURNAL HAEMOGLOBINURIA
     Dosage: 600 MG, UNK
     Route: 042
     Dates: start: 20090205
  2. SOLIRIS [Suspect]
     Dosage: 900 MG, UNK
     Route: 042
     Dates: start: 20090212
  3. PREDNISONE [Concomitant]
     Dosage: 5 MG, QD
  4. PREDNISONE [Concomitant]
     Dosage: 10 MG, QD

REACTIONS (7)
  - ANAEMIA [None]
  - CHILLS [None]
  - DIZZINESS [None]
  - MENORRHAGIA [None]
  - NAUSEA [None]
  - PYREXIA [None]
  - VOMITING [None]
